FAERS Safety Report 13440759 (Version 1)
Quarter: 2017Q2

REPORT INFORMATION
  Report Type: Spontaneous
  Country: US (occurrence: US)
  Receive Date: 20170413
  Receipt Date: 20170413
  Transmission Date: 20170830
  Serious: Yes (Death, Hospitalization, Other)
  Sender: FDA-Public Use
  Company Number: US-ACCORD-050058

PATIENT
  Age: 51 Year
  Sex: Male

DRUGS (3)
  1. BICALUTAMIDE. [Suspect]
     Active Substance: BICALUTAMIDE
     Indication: PROSTATE CANCER METASTATIC
  2. BICALUTAMIDE. [Suspect]
     Active Substance: BICALUTAMIDE
     Indication: PROSTATE CANCER METASTATIC
  3. LEUPRORELIN/LEUPRORELIN ACETATE [Suspect]
     Active Substance: LEUPROLIDE ACETATE
     Indication: PROSTATE CANCER METASTATIC

REACTIONS (7)
  - Hypertension [Unknown]
  - Hyperglycaemia [Unknown]
  - Disease progression [Fatal]
  - Neuroendocrine carcinoma [Recovering/Resolving]
  - Cushing^s syndrome [Recovering/Resolving]
  - Hypokalaemia [Unknown]
  - Skin hyperpigmentation [Unknown]
